FAERS Safety Report 6619650-7 (Version None)
Quarter: 2010Q1

REPORT INFORMATION
  Report Type: 
  Country: None (occurrence: None)
  Receive Date: 20100309
  Receipt Date: 20100303
  Transmission Date: 20100710
  Serious: Yes (Other)
  Sender: FDA-Public Use
  Company Number: IN-ROXANE LABORATORIES, INC.-2010-RO-00231RO

PATIENT
  Age: 18 Year
  Sex: Male

DRUGS (5)
  1. MYCOPHENOLATE MOFETIL [Suspect]
     Indication: PROPHYLAXIS AGAINST TRANSPLANT REJECTION
     Dosage: 1750 MG
  2. MYCOPHENOLATE MOFETIL [Suspect]
     Dosage: 3000 MG
  3. VALPROATE SODIUM [Suspect]
     Indication: AFFECTIVE DISORDER
  4. PREDNISOLONE [Suspect]
  5. TACROLIMUS [Suspect]

REACTIONS (2)
  - AFFECTIVE DISORDER [None]
  - DRUG INTERACTION [None]
